FAERS Safety Report 10509483 (Version 2)
Quarter: 2014Q4

REPORT INFORMATION
  Report Type: Spontaneous
  Country: US (occurrence: US)
  Receive Date: 20141009
  Receipt Date: 20141017
  Transmission Date: 20150528
  Serious: Yes (Life-Threatening, Hospitalization, Other)
  Sender: FDA-Public Use
  Company Number: PHEH2014US020064

PATIENT
  Sex: Female

DRUGS (1)
  1. DIOVAN [Suspect]
     Active Substance: VALSARTAN
     Indication: PRODUCT USED FOR UNKNOWN INDICATION
     Dosage: UKN
     Route: 048

REACTIONS (7)
  - Cardiac failure [Unknown]
  - Feeling abnormal [Unknown]
  - Cardiac flutter [Unknown]
  - Malaise [Unknown]
  - Cough [Unknown]
  - Atrial fibrillation [Unknown]
  - Chest pain [Unknown]
